FAERS Safety Report 14383261 (Version 1)
Quarter: 2018Q1

REPORT INFORMATION
  Report Type: Spontaneous
  Country: US (occurrence: US)
  Receive Date: 20180115
  Receipt Date: 20180115
  Transmission Date: 20180509
  Serious: No
  Sender: FDA-Public Use
  Company Number: US-009507513-1801USA000898

PATIENT
  Age: 33 Year
  Sex: Female

DRUGS (4)
  1. FOLLISTIM [Suspect]
     Active Substance: FOLLITROPIN
     Dosage: 150 IU, UNK
  2. CETRORELIX [Suspect]
     Active Substance: CETRORELIX
     Dosage: 250 MG, UNK
  3. PREGNYL [Suspect]
     Active Substance: CHORIOGONADOTROPIN ALFA
     Dosage: 10 IU, UNK
  4. PREGNYL [Suspect]
     Active Substance: CHORIOGONADOTROPIN ALFA
     Dosage: 10000 IU

REACTIONS (2)
  - Human chorionic gonadotropin abnormal [Unknown]
  - Maternal exposure during pregnancy [Recovered/Resolved]
